FAERS Safety Report 7206817-2 (Version None)
Quarter: 2010Q4

REPORT INFORMATION
  Report Type: 
  Country: None (occurrence: None)
  Receive Date: 20101217
  Receipt Date: 20091030
  Transmission Date: 20110411
  Serious: Yes (Hospitalization, Other)
  Sender: FDA-Public Use
  Company Number: 2009SP033450

PATIENT
  Age: 29 Year
  Sex: Female
  Weight: 127.0072 kg

DRUGS (2)
  1. NUVARING [Suspect]
     Indication: CONTRACEPTION
     Dates: start: 20050901, end: 20071028
  2. TYLENOL-500 [Concomitant]

REACTIONS (6)
  - ABORTION SPONTANEOUS [None]
  - DEEP VEIN THROMBOSIS [None]
  - DRUG EXPOSURE DURING PREGNANCY [None]
  - JOINT SPRAIN [None]
  - PAIN [None]
  - PULMONARY EMBOLISM [None]
